FAERS Safety Report 13718065 (Version 1)
Quarter: 2017Q3

REPORT INFORMATION
  Report Type: Spontaneous
  Country: US (occurrence: US)
  Receive Date: 20170705
  Receipt Date: 20170705
  Transmission Date: 20171127
  Serious: Yes (Hospitalization)
  Sender: FDA-Public Use
  Company Number: US-PFIZER INC-2017284240

PATIENT
  Age: 64 Year
  Sex: Male

DRUGS (6)
  1. PHENYTOIN. [Suspect]
     Active Substance: PHENYTOIN
     Dosage: 300 MG, 1X/DAY
  2. TIOTROPIUM BROMIDE [Concomitant]
     Active Substance: TIOTROPIUM BROMIDE
  3. FLUTICASONE PROPIONATE. [Concomitant]
     Active Substance: FLUTICASONE PROPIONATE
     Route: 055
  4. PHENYTOIN. [Suspect]
     Active Substance: PHENYTOIN
     Dosage: 300 MG, 3X/DAY
  5. ALBUTEROL /00139501/ [Concomitant]
     Active Substance: ALBUTEROL
  6. SALMETEROL [Concomitant]
     Active Substance: SALMETEROL
     Dosage: UNK
     Route: 055

REACTIONS (6)
  - Dystonia [Unknown]
  - Prescribed overdose [Unknown]
  - Agitation [Unknown]
  - Mental status changes [Unknown]
  - Nystagmus [Unknown]
  - Toxicity to various agents [Unknown]
